FAERS Safety Report 8208117-0 (Version None)
Quarter: 2012Q1

REPORT INFORMATION
  Report Type: 
  Country: None (occurrence: None)
  Receive Date: 20120314
  Receipt Date: 20120307
  Transmission Date: 20120608
  Serious: Yes (Disabling)
  Sender: FDA-Public Use
  Company Number: PHHY2011DE64250

PATIENT
  Sex: Female
  Weight: 63 kg

DRUGS (2)
  1. EXTAVIA [Suspect]
     Indication: MULTIPLE SCLEROSIS
     Route: 058
     Dates: start: 20100401
  2. ORAL CONTRACEPTIVE NOS [Concomitant]
     Route: 048

REACTIONS (4)
  - ANTIPHOSPHOLIPID SYNDROME [None]
  - MUSCLE SPASMS [None]
  - HEART RATE DECREASED [None]
  - EMBOLISM ARTERIAL [None]
